FAERS Safety Report 25057344 (Version 2)
Quarter: 2025Q1

REPORT INFORMATION
  Report Type: Report from Study
  Country: CA (occurrence: CA)
  Receive Date: 20250310
  Receipt Date: 20250327
  Transmission Date: 20250408
  Serious: Yes (Other)
  Sender: TAKEDA
  Company Number: CA-TAKEDA-2024TUS066935

PATIENT
  Sex: Male

DRUGS (1)
  1. VEDOLIZUMAB [Suspect]
     Active Substance: VEDOLIZUMAB
     Indication: Crohn^s disease

REACTIONS (7)
  - Crohn^s disease [Unknown]
  - Diarrhoea [Recovering/Resolving]
  - Malaise [Unknown]
  - Abdominal mass [Unknown]
  - Mucous stools [Unknown]
  - Faeces soft [Unknown]
  - Abdominal pain [Unknown]
